FAERS Safety Report 4615749-5 (Version None)
Quarter: 2005Q1

REPORT INFORMATION
  Report Type: 
  Country: None (occurrence: None)
  Receive Date: 20050317
  Receipt Date: 20050303
  Transmission Date: 20050727
  Serious: Yes (Other)
  Sender: FDA-Public Use
  Company Number: 200510964BCC

PATIENT
  Age: 29 Year
  Sex: Female
  Weight: 58.9676 kg

DRUGS (2)
  1. NEO SYNEPHRINE [Suspect]
     Indication: NASAL CONGESTION
     Dosage: BID, RESPIRATORY (INHALATION)
     Route: 055
  2. PLAQUENIL [Concomitant]

REACTIONS (4)
  - DRUG EXPOSURE DURING PREGNANCY [None]
  - FOETAL HEART RATE INCREASED [None]
  - HEART RATE INCREASED [None]
  - MATERNAL DRUGS AFFECTING FOETUS [None]
